FAERS Safety Report 11999186 (Version 3)
Quarter: 2016Q1

REPORT INFORMATION
  Report Type: Spontaneous
  Country: JP (occurrence: JP)
  Receive Date: 20160204
  Receipt Date: 20160209
  Transmission Date: 20160526
  Serious: Yes (Other)
  Sender: FDA-Public Use
  Company Number: JP-ROCHE-1700956

PATIENT
  Age: 6 Year
  Sex: Female
  Weight: 19.4 kg

DRUGS (2)
  1. TAMIFLU [Suspect]
     Active Substance: OSELTAMIVIR PHOSPHATE
     Indication: INFLUENZA
     Dosage: DRY SYRUP?ONLY TAKING: ONCE
     Route: 048
     Dates: start: 20160119, end: 20160119
  2. CALONAL [Concomitant]
     Active Substance: ACETAMINOPHEN
     Dosage: DOSAGE IS UNCERTAIN.
     Route: 065
     Dates: start: 20160201

REACTIONS (3)
  - Altered state of consciousness [Recovered/Resolved]
  - Seizure [Unknown]
  - Abnormal behaviour [Recovering/Resolving]

NARRATIVE: CASE EVENT DATE: 20160119
